FAERS Safety Report 7651607-X (Version None)
Quarter: 2011Q3

REPORT INFORMATION
  Report Type: 
  Country: None (occurrence: None)
  Receive Date: 20110802
  Receipt Date: 20110728
  Transmission Date: 20111222
  Serious: Yes (Other)
  Sender: FDA-Public Use
  Company Number: CHPA2011DE10104

PATIENT
  Sex: Female

DRUGS (1)
  1. OTRIVIN [Suspect]
     Dosage: UNK DF, UNK
     Route: 045

REACTIONS (2)
  - DRUG DEPENDENCE [None]
  - THERAPEUTIC RESPONSE DECREASED [None]
